FAERS Safety Report 7958471-X (Version None)
Quarter: 2011Q4

REPORT INFORMATION
  Report Type: 
  Country: None (occurrence: None)
  Receive Date: 20111205
  Receipt Date: 20111122
  Transmission Date: 20120403
  Serious: Yes (Hospitalization, Other)
  Sender: FDA-Public Use
  Company Number: US-CELGENEUS-163-21880-11093198

PATIENT
  Sex: Female

DRUGS (23)
  1. FUROSEMIDE [Concomitant]
     Dosage: 40 MILLIGRAM
     Route: 065
  2. FLUTICASONE PROPIONATE [Concomitant]
     Dosage: 1 SPRAY
     Route: 045
  3. REVLIMID [Suspect]
     Dosage: 15 MILLIGRAM
     Route: 048
     Dates: start: 20110727, end: 20110918
  4. LOVASTATIN [Concomitant]
     Dosage: 40 MILLIGRAM
     Route: 065
  5. M.V.I. [Concomitant]
     Route: 065
  6. PROMETHAZINE [Concomitant]
     Indication: NAUSEA
     Dosage: 12.5 MILLIGRAM
     Route: 065
  7. ARANESP [Concomitant]
     Route: 065
     Dates: start: 20110701
  8. TRANSFUSION [Concomitant]
     Route: 065
  9. LAXATIVE [Concomitant]
     Route: 065
  10. PERCOCET [Concomitant]
     Indication: BONE PAIN
     Dosage: 5/325MG
     Route: 065
  11. HYDROMORPHONE HCL [Concomitant]
     Indication: PAIN
     Dosage: 2-3MG
     Route: 065
  12. NOVOLIN 70/30 [Concomitant]
     Dosage: 70/30
     Route: 058
  13. FOLIC ACID [Concomitant]
     Route: 065
  14. STOOL SOFTENER [Concomitant]
     Route: 065
  15. REVLIMID [Suspect]
     Dosage: 10 MILLIGRAM
     Route: 048
     Dates: start: 20111001
  16. OXYCODONE HCL [Concomitant]
     Indication: PAIN
     Dosage: 10/325MG, 1/2-1 TABS
     Route: 048
  17. ACETAMINOPHEN [Concomitant]
     Route: 065
  18. PLAVIX [Concomitant]
     Dosage: 75 MILLIGRAM
     Route: 065
  19. ZOMETA [Concomitant]
     Route: 065
     Dates: start: 20110701
  20. TRAMADOL HCL [Concomitant]
     Dosage: 50 MILLIGRAM
     Route: 065
  21. FERROUS SULFATE TAB [Concomitant]
     Dosage: 325 MILLIGRAM
     Route: 065
  22. EYE DROPS [Concomitant]
     Dosage: 1 SPRAY
     Route: 065
  23. METOLAZONE [Concomitant]
     Dosage: 2.5 MILLIGRAM
     Route: 065

REACTIONS (4)
  - VENOUS INSUFFICIENCY [None]
  - FAECAL INCONTINENCE [None]
  - PANCYTOPENIA [None]
  - GASTROENTERITIS VIRAL [None]
